FAERS Safety Report 18666352 (Version 3)
Quarter: 2021Q1

REPORT INFORMATION
  Report Type: Report from Study
  Country: US (occurrence: US)
  Receive Date: 20201227
  Receipt Date: 20210324
  Transmission Date: 20210419
  Serious: No
  Sender: FDA-Public Use
  Company Number: NVSC2020US335612

PATIENT
  Sex: Female

DRUGS (4)
  1. TABRECTA [Suspect]
     Active Substance: CAPMATINIB
     Route: 048
  2. TABRECTA [Suspect]
     Active Substance: CAPMATINIB
     Dosage: 2 DF, QD
     Route: 048
  3. TABRECTA [Suspect]
     Active Substance: CAPMATINIB
     Dosage: UNK
     Route: 048
  4. TABRECTA [Suspect]
     Active Substance: CAPMATINIB
     Indication: PRODUCT USED FOR UNKNOWN INDICATION
     Dosage: 1 DF, QD
     Route: 048

REACTIONS (3)
  - Back pain [Unknown]
  - Pain [Unknown]
  - Peripheral swelling [Unknown]
